FAERS Safety Report 6328334-4 (Version None)
Quarter: 2009Q3

REPORT INFORMATION
  Report Type: 
  Country: None (occurrence: None)
  Receive Date: 20090825
  Receipt Date: 20090422
  Transmission Date: 20100115
  Serious: No
  Sender: FDA-Public Use
  Company Number: US-ABBOTT-09P-163-0569598-00

PATIENT
  Sex: Female
  Weight: 90.8 kg

DRUGS (3)
  1. SYNTHROID [Suspect]
     Indication: AUTOIMMUNE THYROIDITIS
     Route: 048
     Dates: start: 20081201
  2. ADVAIR HFA [Concomitant]
     Indication: ASTHMA
     Route: 055
  3. XOPENEX [Concomitant]
     Indication: ASTHMA
     Route: 055

REACTIONS (6)
  - ASTHMA [None]
  - DEHYDRATION [None]
  - DIZZINESS [None]
  - PRESYNCOPE [None]
  - SINUSITIS [None]
  - SYNCOPE [None]
